FAERS Safety Report 21242682 (Version 2)
Quarter: 2022Q3

REPORT INFORMATION
  Report Type: Report from Study
  Country: DE (occurrence: DE)
  Receive Date: 20220823
  Receipt Date: 20220901
  Transmission Date: 20221026
  Serious: Yes (Hospitalization)
  Sender: FDA-Public Use
  Company Number: DE-NOVARTISPH-NVSC2022DE171455

PATIENT
  Sex: Male
  Weight: 89 kg

DRUGS (1)
  1. GLYCOPYRROLATE\INDACATEROL\MOMETASONE FUROATE [Suspect]
     Active Substance: GLYCOPYRROLATE\INDACATEROL\MOMETASONE FUROATE
     Indication: Asthma
     Dosage: 114 ?G INDACATEROL/ 46 ?G GLYCOPYRRONIUM/136 ?G MOMETASONE, QD (1-0-0, IN THE MORNING)
     Dates: start: 20220322, end: 20220531

REACTIONS (3)
  - Chronic obstructive pulmonary disease [Unknown]
  - Respiratory failure [Unknown]
  - Cough [Recovered/Resolved]

NARRATIVE: CASE EVENT DATE: 20220405
